FAERS Safety Report 25686145 (Version 1)
Quarter: 2025Q3

REPORT INFORMATION
  Report Type: Spontaneous
  Country: JP (occurrence: JP)
  Receive Date: 20250815
  Receipt Date: 20250815
  Transmission Date: 20251020
  Serious: Yes (Death)
  Sender: EISAI
  Company Number: JP-Eisai-202502594_LEN-EC_P_1

PATIENT
  Age: 77 Year
  Sex: Female

DRUGS (3)
  1. LENVIMA [Suspect]
     Active Substance: LENVATINIB
     Indication: Endometrial cancer
  2. KEYTRUDA [Suspect]
     Active Substance: PEMBROLIZUMAB
     Indication: Endometrial cancer
  3. KEYTRUDA [Suspect]
     Active Substance: PEMBROLIZUMAB
     Dosage: DOSE UNKNOWN ONCE EVERY 6 WEEKS.

REACTIONS (4)
  - Pneumonia [Fatal]
  - Liver abscess [Fatal]
  - Brain abscess [Fatal]
  - Diabetes mellitus [Not Recovered/Not Resolved]
